FAERS Safety Report 10067203 (Version 1)
Quarter: 2014Q2

REPORT INFORMATION
  Report Type: Spontaneous
  Country: US (occurrence: None)
  Receive Date: 20140407
  Receipt Date: 20140407
  Transmission Date: 20141212
  Serious: Yes (Other)
  Sender: FDA-Public Use
  Company Number: 2014P1002621

PATIENT
  Sex: Female

DRUGS (1)
  1. TROKENDI XR [Suspect]

REACTIONS (2)
  - Convulsion [None]
  - Stress [None]
